FAERS Safety Report 6132033-1 (Version None)
Quarter: 2009Q1

REPORT INFORMATION
  Report Type: 
  Country: None (occurrence: None)
  Receive Date: 20090325
  Receipt Date: 20090316
  Transmission Date: 20090719
  Serious: Yes (Other)
  Sender: FDA-Public Use
  Company Number: US-JNJCH-2009007336

PATIENT
  Age: 81 Year
  Sex: Female
  Weight: 68 kg

DRUGS (2)
  1. VISINE-A [Suspect]
     Indication: DRY EYE
     Dosage: TEXT:1 DROP IN EACH EYE 1 X AT NIGHT
     Route: 047
     Dates: start: 20090313, end: 20090313
  2. LEVOTHYROXINE SODIUM [Concomitant]
     Indication: THYROID DISORDER
     Dosage: TEXT:.05 MG 1 X
     Route: 065

REACTIONS (2)
  - APPLICATION SITE BURN [None]
  - EYE DISCHARGE [None]
